FAERS Safety Report 8940608 (Version 1)
Quarter: 2012Q4

REPORT INFORMATION
  Report Type: 
  Country: BR (occurrence: BR)
  Receive Date: 20121203
  Receipt Date: 20121203
  Transmission Date: 20130627
  Serious: Yes (Death)
  Sender: FDA-Public Use
  Company Number: PHHY2012BR110303

PATIENT

DRUGS (1)
  1. ZELMAC / HTF 919A [Suspect]

REACTIONS (1)
  - Death [Fatal]
